FAERS Safety Report 18545667 (Version 12)
Quarter: 2023Q2

REPORT INFORMATION
  Report Type: Report from Study
  Country: CA (occurrence: CA)
  Receive Date: 20201125
  Receipt Date: 20230406
  Transmission Date: 20230722
  Serious: Yes (Other)
  Sender: FDA-Public Use
  Company Number: CA-TAKEDA-2020TUS019843

PATIENT
  Age: 72 Year
  Sex: Female

DRUGS (14)
  1. IXAZOMIB [Suspect]
     Active Substance: IXAZOMIB
     Indication: Plasma cell myeloma
     Dosage: 2.3 MILLIGRAM
     Route: 048
     Dates: start: 20180721
  2. REVLIMID [Suspect]
     Active Substance: LENALIDOMIDE
     Indication: Plasma cell myeloma
     Dosage: 10 MILLIGRAM
     Route: 065
     Dates: start: 20180721
  3. REVLIMID [Suspect]
     Active Substance: LENALIDOMIDE
     Dosage: 5 MILLIGRAM
     Route: 065
     Dates: start: 20190528
  4. REVLIMID [Suspect]
     Active Substance: LENALIDOMIDE
     Dosage: 10 MILLIGRAM, QOD
     Route: 065
  5. REVLIMID [Suspect]
     Active Substance: LENALIDOMIDE
     Dosage: 5 MILLIGRAM
     Route: 065
  6. ASPIRIN [Concomitant]
     Active Substance: ASPIRIN
     Dosage: 81 MILLIGRAM, QD
     Route: 065
     Dates: start: 20180721
  7. ACYCLOVIR [Concomitant]
     Active Substance: ACYCLOVIR
     Dosage: 400 MILLIGRAM, BID
     Route: 065
     Dates: start: 20180721
  8. ZOMETA [Concomitant]
     Active Substance: ZOLEDRONIC ACID
     Dosage: UNK UNK, Q3MONTHS
     Route: 065
  9. SYMBICORT [Concomitant]
     Active Substance: BUDESONIDE\FORMOTEROL FUMARATE DIHYDRATE
     Dosage: UNK
     Route: 065
  10. TYLENOL [Concomitant]
     Active Substance: ACETAMINOPHEN
     Indication: Bursitis
     Dosage: 325 MILLIGRAM
     Route: 065
  11. VITAMINS [Concomitant]
     Active Substance: VITAMINS
     Dosage: UNK UNK, QD
     Route: 065
  12. CALCIUM\MAGNESIUM [Concomitant]
     Active Substance: CALCIUM\MAGNESIUM
     Dosage: UNK UNK, QD
     Route: 065
  13. VITAMIN D [Concomitant]
     Active Substance: VITAMIN D NOS
     Dosage: UNK UNK, QD
     Route: 065
  14. BACLOFEN [Concomitant]
     Active Substance: BACLOFEN
     Dosage: UNK
     Route: 065

REACTIONS (26)
  - Eye haemorrhage [Recovered/Resolved]
  - Neutropenia [Unknown]
  - Chest discomfort [Recovered/Resolved]
  - Limb discomfort [Recovered/Resolved]
  - Dyspnoea [Recovered/Resolved]
  - Thrombocytopenia [Not Recovered/Not Resolved]
  - Neuropathy peripheral [Unknown]
  - Headache [Recovered/Resolved]
  - Gingival bleeding [Recovered/Resolved]
  - Oral herpes [Recovered/Resolved]
  - Eye infection [Recovering/Resolving]
  - Eye infection viral [Recovered/Resolved]
  - Platelet count abnormal [Unknown]
  - Lower respiratory tract infection [Recovering/Resolving]
  - Rhinorrhoea [Not Recovered/Not Resolved]
  - Brain fog [Not Recovered/Not Resolved]
  - Nasal congestion [Not Recovered/Not Resolved]
  - Fatigue [Unknown]
  - Cough [Recovering/Resolving]
  - Neutrophil count decreased [Unknown]
  - Nasopharyngitis [Recovering/Resolving]
  - Arthralgia [Recovered/Resolved]
  - Rash [Recovered/Resolved]
  - Diarrhoea [Recovered/Resolved]
  - Product dose omission issue [Unknown]
  - Product availability issue [Unknown]

NARRATIVE: CASE EVENT DATE: 20201220
